FAERS Safety Report 4369037-5 (Version None)
Quarter: 2004Q2

REPORT INFORMATION
  Report Type: 
  Country: None (occurrence: None)
  Receive Date: 20040525
  Receipt Date: 20040510
  Transmission Date: 20050107
  Serious: Yes (Other)
  Sender: FDA-Public Use
  Company Number: 2004-05-0709

PATIENT
  Age: 83 Year
  Sex: Male

DRUGS (1)
  1. CLARITIN-D [Suspect]
     Dosage: 1-2 TABS/DAY ORAL
     Route: 048
     Dates: start: 20040401, end: 20040508

REACTIONS (2)
  - DYSURIA [None]
  - RENAL FAILURE ACUTE [None]
